FAERS Safety Report 10854163 (Version 1)
Quarter: 2015Q1

REPORT INFORMATION
  Report Type: Spontaneous
  Country: CH (occurrence: None)
  Receive Date: 20150218
  Receipt Date: 20150218
  Transmission Date: 20150721
  Serious: Yes (Hospitalization, Other)
  Sender: FDA-Public Use
  Company Number: CH-20150013

PATIENT
  Age: 70 Year
  Sex: Female

DRUGS (10)
  1. GLUCAGEN NOVO HYPOKIT (GLUCAGON) [Concomitant]
  2. MAGNESIOCARD 10(MAGNESIUM) [Concomitant]
  3. DOTAREM [Suspect]
     Active Substance: GADOTERATE MEGLUMINE
     Indication: NUCLEAR MAGNETIC RESONANCE IMAGING ABDOMINAL
     Dosage: 20 ML , 1 IN 1 D)
     Route: 042
     Dates: start: 20150115, end: 20150116
  4. NACL (SODIUM CHLORIDE) [Concomitant]
  5. ASS 100 (ACETYLSALICYLIC ACID) [Concomitant]
  6. ESOMEP (ESOMEPRAZOLE) [Concomitant]
  7. SPASMO-CANULASE (CELLULOSE, PANCREATIN, DIMETICON, SODIUM DEHYDROCHOLATE, METIXEN HYDROCHLORIDE, PEPSINE, GLUTAMIC ACID) [Concomitant]
  8. MANNITOL. [Concomitant]
     Active Substance: MANNITOL
  9. BELOC ZOK (METROPROLOL) [Concomitant]
  10. VI-DE 3 (COLECALCIFEROL) [Concomitant]

REACTIONS (5)
  - Loss of consciousness [None]
  - Orthostatic intolerance [None]
  - Nausea [None]
  - Feeling hot [None]
  - Blood pressure increased [None]

NARRATIVE: CASE EVENT DATE: 20150115
